FAERS Safety Report 16897946 (Version 2)
Quarter: 2019Q4

REPORT INFORMATION
  Report Type: Report from Study
  Country: US (occurrence: US)
  Receive Date: 20191009
  Receipt Date: 20191122
  Transmission Date: 20200122
  Serious: Yes (Other)
  Sender: FDA-Public Use
  Company Number: US-SA-2019SA261039

PATIENT
  Age: 56 Year
  Sex: Female

DRUGS (1)
  1. ALGLUCOSIDASE ALFA [Suspect]
     Active Substance: ALGLUCOSIDASE ALFA
     Indication: GLYCOGEN STORAGE DISEASE TYPE II
     Dosage: 1500; Q2 (UNITS NOT KNOWN)
     Route: 041
     Dates: start: 20190828

REACTIONS (10)
  - Sciatica [Unknown]
  - Cardiac flutter [Unknown]
  - Muscle strain [Not Recovered/Not Resolved]
  - Heart rate abnormal [Unknown]
  - Oropharyngeal pain [Unknown]
  - Headache [Recovered/Resolved]
  - Nodule [Unknown]
  - Muscle spasms [Not Recovered/Not Resolved]
  - Lymphadenopathy [Unknown]
  - Goitre [Unknown]

NARRATIVE: CASE EVENT DATE: 2019
